FAERS Safety Report 6510292-0 (Version None)
Quarter: 2009Q4

REPORT INFORMATION
  Report Type: 
  Country: None (occurrence: None)
  Receive Date: 20091222
  Receipt Date: 20091006
  Transmission Date: 20100525
  Serious: No
  Sender: FDA-Public Use
  Company Number: US-ASTRAZENECA-2009SE18654

PATIENT
  Age: 66 Year
  Sex: Female

DRUGS (2)
  1. CRESTOR [Suspect]
     Indication: BLOOD CHOLESTEROL INCREASED
     Route: 048
  2. LISINOPRIL [Concomitant]
     Indication: HYPERTENSION

REACTIONS (2)
  - COUGH [None]
  - MUSCLE SPASMS [None]
